FAERS Safety Report 11197471 (Version 1)
Quarter: 2015Q2

REPORT INFORMATION
  Report Type: Report from Study
  Country: ES (occurrence: ES)
  Receive Date: 20150617
  Receipt Date: 20150617
  Transmission Date: 20150821
  Serious: Yes (Hospitalization)
  Sender: FDA-Public Use
  Company Number: ES-BAYER-2015-331807

PATIENT
  Age: 81 Year

DRUGS (3)
  1. ADIRO 100 MG GASTRO-RESISTANT TABLETS, 500 TABLETS [Suspect]
     Active Substance: ASPIRIN
     Dosage: 100 MG, QD
     Route: 048
     Dates: start: 2013, end: 20141201
  2. ZALDIAR [Concomitant]
     Active Substance: ACETAMINOPHEN\TRAMADOL HYDROCHLORIDE
  3. PARACETAMOL [Concomitant]
     Active Substance: ACETAMINOPHEN
     Dosage: 1 G, TID

REACTIONS (2)
  - Rib fracture [Recovered/Resolved]
  - Haemothorax [Recovered/Resolved]

NARRATIVE: CASE EVENT DATE: 20141201
